FAERS Safety Report 11525854 (Version 1)
Quarter: 2015Q3

REPORT INFORMATION
  Report Type: Spontaneous
  Country: US (occurrence: US)
  Receive Date: 20150918
  Receipt Date: 20150918
  Transmission Date: 20151125
  Serious: Yes (Other)
  Sender: FDA-Public Use
  Company Number: US-TAKEDA-TPA2012A04009

PATIENT

DRUGS (5)
  1. GLUCOTROL [Concomitant]
     Active Substance: GLIPIZIDE
  2. JANUVIA [Concomitant]
     Active Substance: SITAGLIPTIN PHOSPHATE
     Dates: start: 2007, end: 2009
  3. GLUCOPHAGE [Concomitant]
     Active Substance: METFORMIN HYDROCHLORIDE
  4. ACTOS [Suspect]
     Active Substance: PIOGLITAZONE HYDROCHLORIDE
     Indication: TYPE 2 DIABETES MELLITUS
     Dates: start: 2003, end: 2010
  5. GLUCOTROL [Concomitant]
     Active Substance: GLIPIZIDE
     Dates: start: 2004, end: 2007

REACTIONS (2)
  - Bladder cancer recurrent [Unknown]
  - Bladder cancer [Unknown]

NARRATIVE: CASE EVENT DATE: 200501
